FAERS Safety Report 16939111 (Version 11)
Quarter: 2025Q3

REPORT INFORMATION
  Report Type: Spontaneous
  Country: PK (occurrence: PK)
  Receive Date: 20191020
  Receipt Date: 20250825
  Transmission Date: 20251021
  Serious: Yes (Other)
  Sender: AMGEN
  Company Number: PK-PFIZER INC-2019388195

PATIENT
  Age: 38 Year
  Sex: Female
  Weight: 56 kg

DRUGS (18)
  1. ENBREL [Suspect]
     Active Substance: ETANERCEPT
     Indication: Ankylosing spondylitis
     Dosage: 50 MG, WEEKLY FOR 4 MONTHS AFTER MEAL
     Route: 058
     Dates: start: 201809
  2. ENBREL [Suspect]
     Active Substance: ETANERCEPT
     Route: 058
  3. ENBREL [Suspect]
     Active Substance: ETANERCEPT
     Dosage: 50 MG, WEEKLY
     Route: 058
     Dates: start: 20190904
  4. ENBREL [Suspect]
     Active Substance: ETANERCEPT
     Dosage: 50MG, ONCE A WEEK
     Route: 058
     Dates: start: 20191010
  5. ENBREL [Suspect]
     Active Substance: ETANERCEPT
     Dosage: 50MG, ONCE A WEEK
     Route: 058
     Dates: start: 201911
  6. Nuberol [Concomitant]
     Dosage: 700 MG (1 TAB), 1X/DAY FOR 3 MONTHS AFTER BREAKFAST
     Route: 048
     Dates: start: 2018
  7. Comforta [Concomitant]
     Dosage: 0.5 DF, 1X/DAY ( (1/2 TABS), 1X/DAY FOR 3 MONTHS AFTER DINNER)
     Route: 048
     Dates: start: 2018
  8. INDROP-D [Concomitant]
     Dosage: 1 DF, MONTHLY (200000 IU (1 CAPS), MONTHLY FOR 4 MONTHS AFTER BREAKFAST)
     Route: 048
     Dates: start: 2013
  9. Fefol vit [Concomitant]
     Dosage: 150 MG (1 CAP), 1X/DAY FOR 4 MONTHS AFTER MEAL
     Route: 048
     Dates: start: 20191005
  10. Fefol vit [Concomitant]
  11. DICLOFENAC SODIUM [Concomitant]
     Active Substance: DICLOFENAC SODIUM
  12. TORADOL [Concomitant]
     Active Substance: KETOROLAC TROMETHAMINE
     Route: 042
  13. Diagesic p [Concomitant]
  14. Ramipace [Concomitant]
     Dosage: 5 MG, 1X/DAY
  15. VITAMINS [Concomitant]
     Active Substance: VITAMINS
  16. Flux [Concomitant]
  17. Movax [Concomitant]
     Dosage: 2MG 1 TAB DAILY FOR 4 MONTHS
  18. Ossobon d [Concomitant]
     Dosage: 1 DF, 1X/DAY (830 MG, 1 TAB ORALLY ONCE DAILY FOR 4 MONTHS AFTER MEAL)
     Route: 048

REACTIONS (11)
  - Uveitis [Recovered/Resolved]
  - Chronic kidney disease [Recovered/Resolved]
  - Proteinuria [Recovered/Resolved]
  - Pain [Not Recovered/Not Resolved]
  - Sacroiliitis [Unknown]
  - Back pain [Unknown]
  - Musculoskeletal stiffness [Not Recovered/Not Resolved]
  - Hypoaesthesia [Not Recovered/Not Resolved]
  - Joint range of motion decreased [Unknown]
  - Asthenia [Unknown]
  - Off label use [Unknown]

NARRATIVE: CASE EVENT DATE: 20191005
